FAERS Safety Report 8773420 (Version 1)
Quarter: 2012Q4

REPORT INFORMATION
  Report Type: 
  Country: CA (occurrence: CA)
  Receive Date: 20120907
  Receipt Date: 20120907
  Transmission Date: 20130627
  Serious: Yes (Life-Threatening, Hospitalization)
  Sender: FDA-Public Use
  Company Number: CA-009507513-1206USA01898

PATIENT

DRUGS (16)
  1. JANUVIA [Suspect]
     Indication: TYPE 2 DIABETES MELLITUS
     Dosage: 100 mg, qd
     Route: 048
     Dates: start: 20111123
  2. HYDROCHLOROTHIAZIDE [Suspect]
     Indication: OEDEMA
     Dosage: 25 mg, qd
     Route: 048
     Dates: start: 20111123
  3. ALLOPURINOL [Concomitant]
     Dosage: 300 mg, qd
  4. BETAHISTINE [Concomitant]
     Dosage: 24 mg, bid
  5. CRESTOR [Concomitant]
     Dosage: 10 mg, qd
  6. DICETEL [Concomitant]
     Dosage: 100 mg, tid
  7. FUROSEMIDE [Concomitant]
     Dosage: 40 mg, UNK
  8. GLICLAZIDE [Concomitant]
     Dosage: 30 mg, bid
  9. METOPROLOL [Concomitant]
     Dosage: 50 mg, UNK
  10. PLAVIX [Concomitant]
     Dosage: 75 mg, UNK
  11. POTASSIUM (UNSPECIFIED) [Concomitant]
     Dosage: 600 mg, bid
  12. QUININE SULFATE [Concomitant]
     Dosage: 300 mg, hs
  13. RABEPRAZOLE SODIUM [Concomitant]
     Dosage: 20 mg, qd
  14. SPIRONOLACTONE [Concomitant]
     Dosage: 50 mg, bid
  15. SYNTHROID [Concomitant]
     Dosage: 0.175 mg, qd
  16. CYANOCOBALAMIN [Concomitant]
     Dosage: 1000 Microgram, qd

REACTIONS (7)
  - Ageusia [Recovered/Resolved with Sequelae]
  - Abdominal discomfort [Recovered/Resolved with Sequelae]
  - Asthenia [Recovered/Resolved with Sequelae]
  - Blood potassium decreased [Recovered/Resolved with Sequelae]
  - Oesophageal pain [Recovered/Resolved with Sequelae]
  - Oral discomfort [Recovered/Resolved with Sequelae]
  - Swollen tongue [Recovered/Resolved with Sequelae]
